FAERS Safety Report 22654545 (Version 1)
Quarter: 2023Q2

REPORT INFORMATION
  Report Type: Spontaneous
  Country: US (occurrence: US)
  Receive Date: 20230629
  Receipt Date: 20230629
  Transmission Date: 20230721
  Serious: Yes (Hospitalization, Other)
  Sender: FDA-Public Use
  Company Number: US-EPIZYME, INC-2022USEPIZYME0746

PATIENT
  Age: 88 Year
  Sex: Female
  Weight: 68.03 kg

DRUGS (29)
  1. TAZVERIK [Suspect]
     Active Substance: TAZEMETOSTAT HYDROBROMIDE
     Indication: Follicular lymphoma
     Dosage: 800 MG, BID
     Route: 048
     Dates: start: 20210611
  2. TAZVERIK [Suspect]
     Active Substance: TAZEMETOSTAT HYDROBROMIDE
     Dosage: 800 MG, BID
     Dates: start: 20210611
  3. ACETAMINOPHEN [Concomitant]
     Active Substance: ACETAMINOPHEN
     Dosage: 325 MG
  4. PROAIR HFA [Concomitant]
     Active Substance: ALBUTEROL SULFATE
  5. ELIQUIS [Concomitant]
     Active Substance: APIXABAN
     Dosage: 5 MG
  6. SINEMET [Concomitant]
     Active Substance: CARBIDOPA\LEVODOPA
     Dosage: 25-100 MG
  7. RESTASIS [Concomitant]
     Active Substance: CYCLOSPORINE
  8. DOCUSATE [Concomitant]
     Active Substance: DOCUSATE
     Dosage: 100 MG
  9. DONEPEZIL [Concomitant]
     Active Substance: DONEPEZIL
     Dosage: 5 MG
  10. FERROUS SULFATE [Concomitant]
     Active Substance: FERROUS SULFATE
     Dosage: 325 MG
  11. MAGNESIUM OXIDE [Concomitant]
     Active Substance: MAGNESIUM OXIDE
     Dosage: 400 MG
  12. ONDANSETRON [Concomitant]
     Active Substance: ONDANSETRON
     Dosage: 8 UNK
  13. PROTONIX [Concomitant]
     Active Substance: PANTOPRAZOLE SODIUM
     Dosage: 20 MG
  14. PROPRANOLOL [Concomitant]
     Active Substance: PROPRANOLOL HYDROCHLORIDE
     Dosage: 20 MG
  15. RISPERIDONE [Concomitant]
     Active Substance: RISPERIDONE
     Dosage: 0.5 MG
  16. SERTRALINE [Concomitant]
     Active Substance: SERTRALINE HYDROCHLORIDE
     Dosage: 50 MG
  17. LOPERAMIDE HYDROCHLORIDE [Concomitant]
     Active Substance: LOPERAMIDE HYDROCHLORIDE
  18. CIPRO [Concomitant]
     Active Substance: CIPROFLOXACIN HYDROCHLORIDE
     Dosage: 250 MG
  19. CALCIUM [Concomitant]
     Active Substance: CALCIUM
     Dosage: 500 MG
  20. VITAMIN B12 [Concomitant]
     Active Substance: CYANOCOBALAMIN
  21. PERCOCET [Concomitant]
     Active Substance: ACETAMINOPHEN\OXYCODONE HYDROCHLORIDE
     Dosage: 5-325 MG
  22. VITAMIN D NOS [Concomitant]
     Active Substance: VITAMIN D NOS
     Dosage: 25 MCG
  23. VITAMIN C [Concomitant]
     Active Substance: ASCORBIC ACID
  24. SENNA [Concomitant]
     Active Substance: SENNA LEAF\SENNOSIDES\SENNOSIDES A AND B
  25. CERAVE HEALING [Concomitant]
     Active Substance: PETROLATUM
  26. LIDOCAINE AND PRILOCAINE [Concomitant]
     Active Substance: LIDOCAINE\PRILOCAINE
  27. MENTHOLATUM ORIGINAL [Concomitant]
     Active Substance: CAMPHOR (NATURAL)\MENTHOL
  28. VITAMIN D3 [Concomitant]
     Active Substance: CHOLECALCIFEROL
  29. ZOFRAN [Concomitant]
     Active Substance: ONDANSETRON HYDROCHLORIDE

REACTIONS (4)
  - Transient ischaemic attack [Recovering/Resolving]
  - COVID-19 [Recovered/Resolved]
  - Parkinson^s disease [Unknown]
  - Urinary tract infection [Recovered/Resolved]

NARRATIVE: CASE EVENT DATE: 20221012
